FAERS Safety Report 19144804 (Version 1)
Quarter: 2021Q2

REPORT INFORMATION
  Report Type: Spontaneous
  Country: US (occurrence: US)
  Receive Date: 20210415
  Receipt Date: 20210415
  Transmission Date: 20210717
  Serious: Yes (Disabling)
  Sender: FDA-Public Use
  Company Number: None

PATIENT
  Age: 61 Year
  Sex: Male
  Weight: 67.5 kg

DRUGS (8)
  1. D [Concomitant]
  2. TAMSULOSIN [Concomitant]
     Active Substance: TAMSULOSIN
  3. B?50 [Concomitant]
  4. DBS [Concomitant]
  5. RYTARY [Suspect]
     Active Substance: CARBIDOPA\LEVODOPA
     Indication: PARKINSON^S DISEASE
     Dosage: ?          OTHER FREQUENCY:5 TIMES A DAY;?
     Route: 048
  6. PFIZER?BIONTECH COVID?19 VACCINE [Suspect]
     Active Substance: TOZINAMERAN
  7. CARBIDOPA?LEVODOPA [Suspect]
     Active Substance: CARBIDOPA\LEVODOPA
  8. ESTER C [Concomitant]

REACTIONS (8)
  - Limb injury [None]
  - COVID-19 immunisation [None]
  - Joint injury [None]
  - Paralysis [None]
  - Physical disability [None]
  - Drug interaction [None]
  - Treatment failure [None]
  - Parkinson^s disease [None]

NARRATIVE: CASE EVENT DATE: 20210410
